FAERS Safety Report 9028894 (Version 1)
Quarter: 2013Q1

REPORT INFORMATION
  Report Type: Spontaneous
  Country: US (occurrence: US)
  Receive Date: 20130124
  Receipt Date: 20130124
  Transmission Date: 20140127
  Serious: No
  Sender: FDA-Public Use
  Company Number: US-BAUSCH-2012BL002388

PATIENT
  Age: 62 Year
  Sex: Female

DRUGS (3)
  1. ALAWAY [Suspect]
     Indication: EYE SWELLING
     Route: 047
     Dates: start: 20120404, end: 20120404
  2. ALAWAY [Suspect]
     Indication: OFF LABEL USE
  3. BROMDAY [Concomitant]
     Indication: POSTOPERATIVE CARE
     Route: 047
     Dates: start: 20120316

REACTIONS (1)
  - Somnolence [Recovered/Resolved]
